FAERS Safety Report 8507277 (Version 3)
Quarter: 2015Q1

REPORT INFORMATION
  Report Type: Spontaneous
  Country: US (occurrence: US)
  Receive Date: 20120412
  Receipt Date: 20150206
  Transmission Date: 20150721
  Serious: Yes (Other)
  Sender: FDA-Public Use
  Company Number: US-ASTRAZENECA-2011SE40635

PATIENT
  Age: 69 Year
  Sex: Female
  Weight: 49.9 kg

DRUGS (9)
  1. RESTATSIS [Concomitant]
     Indication: DRY EYE
  2. NEXIUM [Suspect]
     Active Substance: ESOMEPRAZOLE MAGNESIUM
     Indication: GASTRIC OPERATION
     Route: 048
  3. TOPROL XL [Concomitant]
     Active Substance: METOPROLOL SUCCINATE
  4. VITAMINS [Concomitant]
     Active Substance: VITAMINS
  5. BUSPAR [Concomitant]
     Active Substance: BUSPIRONE HYDROCHLORIDE
     Indication: NERVOUS SYSTEM DISORDER
  6. ALLEGRA [Concomitant]
     Active Substance: FEXOFENADINE HYDROCHLORIDE
  7. PRILOSEC OTC [Suspect]
     Active Substance: OMEPRAZOLE MAGNESIUM
     Route: 048
  8. FISH OIL [Concomitant]
     Active Substance: FISH OIL
  9. MELOXICAM. [Concomitant]
     Active Substance: MELOXICAM
     Indication: BONE DISORDER
     Dosage: DAILY

REACTIONS (10)
  - Road traffic accident [Recovering/Resolving]
  - Malaise [Unknown]
  - Gastroenteritis viral [Unknown]
  - Product use issue [Unknown]
  - Malaise [Not Recovered/Not Resolved]
  - Drug dose omission [Not Recovered/Not Resolved]
  - Hypophagia [Unknown]
  - Weight decreased [Unknown]
  - Abdominal pain upper [Not Recovered/Not Resolved]
  - Drug ineffective [Unknown]

NARRATIVE: CASE EVENT DATE: 20110623
